FAERS Safety Report 12850776 (Version 1)
Quarter: 2016Q4

REPORT INFORMATION
  Report Type: Spontaneous
  Country: US (occurrence: US)
  Receive Date: 20161014
  Receipt Date: 20161014
  Transmission Date: 20170207
  Serious: No
  Sender: FDA-Public Use
  Company Number: US-009507513-1610USA005447

PATIENT
  Age: 20 Year
  Sex: Female
  Weight: 65.76 kg

DRUGS (2)
  1. NEXPLANON [Suspect]
     Active Substance: ETONOGESTREL
     Indication: MENSTRUAL CYCLE MANAGEMENT
     Dosage: 1 DF, 1 ROD UP TO 3 YEARS
     Route: 059
     Dates: start: 20161003
  2. METADATE [Concomitant]
     Active Substance: METHYLPHENIDATE HYDROCHLORIDE
     Dosage: USED ONLY WHEN NEEDED

REACTIONS (3)
  - Depressed mood [Unknown]
  - Product use issue [Unknown]
  - Mood swings [Unknown]

NARRATIVE: CASE EVENT DATE: 201610
